FAERS Safety Report 18342916 (Version 2)
Quarter: 2020Q4

REPORT INFORMATION
  Report Type: Spontaneous
  Country: US (occurrence: US)
  Receive Date: 20201005
  Receipt Date: 20201016
  Transmission Date: 20210113
  Serious: Yes (Hospitalization, Other)
  Sender: FDA-Public Use
  Company Number: US-ASTRAZENECA-2020SF27340

PATIENT
  Age: 15616 Day
  Sex: Male
  Weight: 114.8 kg

DRUGS (28)
  1. ACTOS [Concomitant]
     Active Substance: PIOGLITAZONE HYDROCHLORIDE
  2. AMLODIPINE BESYLATE. [Concomitant]
     Active Substance: AMLODIPINE BESYLATE
  3. LISINOPRIL. [Concomitant]
     Active Substance: LISINOPRIL
  4. GABAPENTIN. [Concomitant]
     Active Substance: GABAPENTIN
  5. GEMFIBROZIL. [Concomitant]
     Active Substance: GEMFIBROZIL
  6. LOSARTAN. [Concomitant]
     Active Substance: LOSARTAN
  7. FARXIGA [Suspect]
     Active Substance: DAPAGLIFLOZIN PROPANEDIOL
     Indication: BLOOD PRESSURE DECREASED
     Route: 048
     Dates: start: 201702, end: 201809
  8. JANUVIA [Concomitant]
     Active Substance: SITAGLIPTIN PHOSPHATE
  9. BESIVANCE [Concomitant]
     Active Substance: BESIFLOXACIN
  10. AMOX-CLAV [Concomitant]
     Active Substance: AMOXICILLIN\CLAVULANATE POTASSIUM
  11. BENZONATATE. [Concomitant]
     Active Substance: BENZONATATE
  12. CLINDAMYCIN. [Concomitant]
     Active Substance: CLINDAMYCIN
  13. TOBRAMYCIN. [Concomitant]
     Active Substance: TOBRAMYCIN
  14. LOSARTAN POTASSIUM. [Concomitant]
     Active Substance: LOSARTAN POTASSIUM
  15. CEPHALEXIN. [Concomitant]
     Active Substance: CEPHALEXIN
  16. ASPIRIN. [Concomitant]
     Active Substance: ASPIRIN
  17. NORVASC [Concomitant]
     Active Substance: AMLODIPINE BESYLATE
  18. FARXIGA [Suspect]
     Active Substance: DAPAGLIFLOZIN PROPANEDIOL
     Indication: WEIGHT DECREASED
     Route: 048
     Dates: start: 201702, end: 201809
  19. GLIMEPIRIDE. [Concomitant]
     Active Substance: GLIMEPIRIDE
  20. FARXIGA [Suspect]
     Active Substance: DAPAGLIFLOZIN PROPANEDIOL
     Indication: TYPE 2 DIABETES MELLITUS
     Route: 048
     Dates: start: 201702, end: 201809
  21. SIMVASTATIN. [Concomitant]
     Active Substance: SIMVASTATIN
  22. MELOXICAM. [Concomitant]
     Active Substance: MELOXICAM
  23. METOPROLOL SUCCINATE. [Concomitant]
     Active Substance: METOPROLOL SUCCINATE
  24. METFORMIN HCL [Concomitant]
     Active Substance: METFORMIN HYDROCHLORIDE
  25. CIPROFLOXACIN. [Concomitant]
     Active Substance: CIPROFLOXACIN
  26. MOXIFLOXACIN. [Concomitant]
     Active Substance: MOXIFLOXACIN
  27. PIOGLITAZONE. [Concomitant]
     Active Substance: PIOGLITAZONE
  28. HUMULIN NOS [Concomitant]
     Active Substance: INSULIN HUMAN

REACTIONS (8)
  - Cellulitis [Unknown]
  - Sepsis [Unknown]
  - Scrotal abscess [Unknown]
  - Fournier^s gangrene [Unknown]
  - Nerve injury [Unknown]
  - Pain [Unknown]
  - Anal incontinence [Unknown]
  - Scar [Unknown]

NARRATIVE: CASE EVENT DATE: 20180822
